FAERS Safety Report 16364618 (Version 2)
Quarter: 2019Q2

REPORT INFORMATION
  Report Type: Spontaneous
  Country: US (occurrence: US)
  Receive Date: 20190529
  Receipt Date: 20190627
  Transmission Date: 20190711
  Serious: No
  Sender: FDA-Public Use
  Company Number: US-009507513-1905USA012202

PATIENT
  Sex: Female

DRUGS (2)
  1. PUREGON PEN [Suspect]
     Active Substance: FOLLITROPIN
     Indication: PRODUCT USED FOR UNKNOWN INDICATION
     Dosage: UNK
  2. FOLLISTIM AQ [Concomitant]
     Active Substance: FOLLITROPIN
     Dosage: 225 UNITS TWICE A DAY
     Route: 058
     Dates: start: 201905

REACTIONS (1)
  - Device malfunction [Unknown]

NARRATIVE: CASE EVENT DATE: 201905
